FAERS Safety Report 18257716 (Version 1)
Quarter: 2020Q3

REPORT INFORMATION
  Report Type: Spontaneous
  Country: US (occurrence: US)
  Receive Date: 20200911
  Receipt Date: 20200911
  Transmission Date: 20201103
  Serious: Yes (Other)
  Sender: FDA-Public Use
  Company Number: None

PATIENT
  Age: 30 Year
  Sex: Male
  Weight: 78.3 kg

DRUGS (4)
  1. FLONASE GENERIC [Concomitant]
  2. HYDROCODONE/ACETAMINOPHEN 5?325 TB. [Suspect]
     Active Substance: ACETAMINOPHEN\HYDROCODONE BITARTRATE
     Indication: PROCEDURAL PAIN
     Dosage: ?          QUANTITY:1 TABLET(S);?
     Route: 048
     Dates: start: 20200902, end: 20200904
  3. CEPHALEXIN. [Concomitant]
     Active Substance: CEPHALEXIN
  4. INHALER [Concomitant]
     Active Substance: UNSPECIFIED INGREDIENT

REACTIONS (3)
  - Rash pruritic [None]
  - Procedural site reaction [None]
  - Hypersensitivity [None]

NARRATIVE: CASE EVENT DATE: 20200903
